FAERS Safety Report 14776890 (Version 1)
Quarter: 2018Q2

REPORT INFORMATION
  Report Type: Spontaneous
  Country: US (occurrence: US)
  Receive Date: 20180419
  Receipt Date: 20180419
  Transmission Date: 20180711
  Serious: No
  Sender: FDA-Public Use
  Company Number: US-MACLEODS PHARMACEUTICALS US LTD-MAC2018011069

PATIENT

DRUGS (1)
  1. ZOLMITRIPTAN ORALLY DISINTEGRATING TABLET [Suspect]
     Active Substance: ZOLMITRIPTAN
     Indication: MIGRAINE
     Route: 048

REACTIONS (2)
  - Drug ineffective [Unknown]
  - Product packaging issue [Unknown]
